FAERS Safety Report 9845177 (Version 2)
Quarter: 2014Q1

REPORT INFORMATION
  Report Type: Spontaneous
  Country: IN (occurrence: IN)
  Receive Date: 20140127
  Receipt Date: 20140127
  Transmission Date: 20141002
  Serious: Yes (Other)
  Sender: FDA-Public Use
  Company Number: IN-PFIZER INC-2014021283

PATIENT
  Age: 17 Year
  Sex: Female

DRUGS (1)
  1. METHYLPREDNISOLONE SODIUM SUCCINATE [Suspect]
     Indication: PANCYTOPENIA
     Dosage: 30 MG/KG, DAILY (THREE DAILY PULSES)
     Route: 042

REACTIONS (4)
  - Posterior reversible encephalopathy syndrome [Unknown]
  - Grand mal convulsion [Recovering/Resolving]
  - Headache [Recovering/Resolving]
  - Vision blurred [Unknown]
